FAERS Safety Report 18191603 (Version 5)
Quarter: 2020Q3

REPORT INFORMATION
  Report Type: Spontaneous
  Country: US (occurrence: US)
  Receive Date: 20200825
  Receipt Date: 20200909
  Transmission Date: 20201103
  Serious: No
  Sender: FDA-Public Use
  Company Number: US-AMGEN-USASP2020134442

PATIENT
  Age: 75 Year
  Sex: Male
  Weight: 74.83 kg

DRUGS (2)
  1. NEULASTA [Suspect]
     Active Substance: PEGFILGRASTIM
     Indication: PROPHYLAXIS
     Dosage: 6 MILLIGRAM, Q4WK (EVERY 28 DAYS)
     Route: 058
     Dates: start: 20200817
  2. NEULASTA [Suspect]
     Active Substance: PEGFILGRASTIM
     Dosage: 6 MILLIGRAM, Q4WK (EVERY 28 DAYS)
     Route: 058
     Dates: start: 20200817

REACTIONS (1)
  - Device power source issue [Unknown]

NARRATIVE: CASE EVENT DATE: 20200817
